FAERS Safety Report 4578621-5 (Version None)
Quarter: 2005Q1

REPORT INFORMATION
  Report Type: 
  Country: None (occurrence: None)
  Receive Date: 20050207
  Receipt Date: 20050207
  Transmission Date: 20050727
  Serious: Yes (Life-Threatening, Hospitalization)
  Sender: FDA-Public Use
  Company Number: None

PATIENT
  Age: 75 Year
  Sex: Female
  Weight: 97.0698 kg

DRUGS (2)
  1. ADENOSCAN [Suspect]
     Indication: CHEST PAIN
     Dosage: 54.5MG   INTRAVENOU
     Route: 042
     Dates: start: 20050203, end: 20050203
  2. ADENOSCAN [Suspect]
     Indication: CORONARY ARTERY DISEASE
     Dosage: 54.5MG   INTRAVENOU
     Route: 042
     Dates: start: 20050203, end: 20050203

REACTIONS (3)
  - ANXIETY [None]
  - EMOTIONAL DISTRESS [None]
  - RESPIRATORY FAILURE [None]
